FAERS Safety Report 12777949 (Version 1)
Quarter: 2016Q3

REPORT INFORMATION
  Report Type: Spontaneous
  Country: US (occurrence: US)
  Receive Date: 20160924
  Receipt Date: 20160924
  Transmission Date: 20161109
  Serious: No
  Sender: FDA-Public Use
  Company Number: US-JAZZ-2016-US-010896

PATIENT
  Sex: Male

DRUGS (37)
  1. XYREM [Suspect]
     Active Substance: SODIUM OXYBATE
     Indication: CATAPLEXY
     Dosage: DOSE ADJUSTMENTS
     Route: 048
     Dates: start: 201411, end: 2016
  2. XYREM [Suspect]
     Active Substance: SODIUM OXYBATE
     Dosage: 4.5 G, FIRST DOSE
     Route: 048
     Dates: start: 201603
  3. ZOFRAN [Concomitant]
     Active Substance: ONDANSETRON HYDROCHLORIDE
  4. CARDURA [Concomitant]
     Active Substance: DOXAZOSIN MESYLATE
  5. GERITOL COMPLETE [Concomitant]
  6. COMPLERA [Concomitant]
     Active Substance: EMTRICITABINE\RILPIVIRINE HYDROCHLORIDE\TENOFOVIR DISOPROXIL FUMARATE
  7. DURAGESIC [Concomitant]
     Active Substance: FENTANYL
  8. IMITREX [Concomitant]
     Active Substance: SUMATRIPTAN SUCCINATE
  9. KLONOPIN [Concomitant]
     Active Substance: CLONAZEPAM
  10. BUPRENORPHINE HCL [Concomitant]
     Active Substance: BUPRENORPHINE HYDROCHLORIDE
  11. XYREM [Suspect]
     Active Substance: SODIUM OXYBATE
     Dosage: 3 G, SECOND DOSE
     Route: 048
     Dates: start: 201603
  12. ANDROGEL [Concomitant]
     Active Substance: TESTOSTERONE
  13. RELISTOR [Concomitant]
     Active Substance: METHYLNALTREXONE BROMIDE
  14. TAMSULOSIN HCL [Concomitant]
     Active Substance: TAMSULOSIN
  15. ASPIRIN ADULT [Concomitant]
  16. REQUIP [Concomitant]
     Active Substance: ROPINIROLE HYDROCHLORIDE
  17. XYREM [Suspect]
     Active Substance: SODIUM OXYBATE
     Indication: NARCOLEPSY
     Dosage: 2.25 G, BID
     Route: 048
     Dates: start: 201411, end: 201411
  18. REVATIO [Concomitant]
     Active Substance: SILDENAFIL CITRATE
  19. TIVICAY [Concomitant]
     Active Substance: DOLUTEGRAVIR SODIUM
  20. RETROVIR [Concomitant]
     Active Substance: ZIDOVUDINE
  21. OVACE PLUS [Concomitant]
     Active Substance: SULFACETAMIDE SODIUM
  22. MARINOL [Concomitant]
     Active Substance: DRONABINOL
  23. SUBUTEX [Concomitant]
     Active Substance: BUPRENORPHINE HYDROCHLORIDE
  24. CIALIS [Concomitant]
     Active Substance: TADALAFIL
  25. LEXIVA [Concomitant]
     Active Substance: FOSAMPRENAVIR CALCIUM
  26. LYRICA [Concomitant]
     Active Substance: PREGABALIN
  27. COUMADIN [Concomitant]
     Active Substance: WARFARIN SODIUM
  28. EPZICOM [Concomitant]
     Active Substance: ABACAVIR SULFATE\LAMIVUDINE
  29. MODAFINIL. [Concomitant]
     Active Substance: MODAFINIL
  30. VITAMIN B COMPLEX [Concomitant]
     Active Substance: CYANOCOBALAMIN\DEXPANTHENOL\NIACINAMIDE\PYRIDOXINE HYDROCHLORIDE\RIBOFLAVIN 5^-PHOSPHATE SODIUM\THIAMINE HYDROCHLORIDE\VITAMIN B COMPLEX
  31. CLOBEX [Concomitant]
     Active Substance: CLOBETASOL PROPIONATE
  32. GAMUNEX-C [Concomitant]
     Active Substance: HUMAN IMMUNOGLOBULIN G
  33. PROAIR HFA [Concomitant]
     Active Substance: ALBUTEROL SULFATE
  34. SPIRIVA [Concomitant]
     Active Substance: TIOTROPIUM BROMIDE MONOHYDRATE
  35. TRUVADA [Concomitant]
     Active Substance: EMTRICITABINE\TENOFOVIR DISOPROXIL FUMARATE
  36. VITAMIN D [Concomitant]
     Active Substance: CHOLECALCIFEROL
  37. XANAX [Concomitant]
     Active Substance: ALPRAZOLAM

REACTIONS (1)
  - Weight decreased [Unknown]
